FAERS Safety Report 4840789-0 (Version None)
Quarter: 2005Q4

REPORT INFORMATION
  Report Type: 
  Country: None (occurrence: None)
  Receive Date: 20051130
  Receipt Date: 20041103
  Transmission Date: 20060501
  Serious: No
  Sender: FDA-Public Use
  Company Number: US-BRISTOL-MYERS SQUIBB COMPANY-12754784

PATIENT
  Age: 68 Year
  Sex: Female
  Weight: 88 kg

DRUGS (4)
  1. AVALIDE [Suspect]
     Indication: HYPERTENSION
     Dosage: STARTED THERAPY APPROXIMATELY FOUR MONTHS AGO.
     Route: 048
     Dates: start: 20040308
  2. CELEBREX [Concomitant]
     Dosage: TAKING FOR A LONG TIME
  3. PROZAC [Concomitant]
     Dosage: TAKING FOR A LONG TIME
  4. ZOCOR [Concomitant]
     Dosage: TAKING FOR THE PAST 4 TO 5 MONTHS

REACTIONS (1)
  - ALOPECIA [None]
